FAERS Safety Report 19499057 (Version 1)
Quarter: 2021Q3

REPORT INFORMATION
  Report Type: Report from Study
  Country: FR (occurrence: FR)
  Receive Date: 20210706
  Receipt Date: 20210706
  Transmission Date: 20211014
  Serious: Yes (Hospitalization)
  Sender: FDA-Public Use
  Company Number: FR-ROCHE-2861473

PATIENT
  Age: 72 Year
  Sex: Female

DRUGS (5)
  1. CREON [Concomitant]
     Active Substance: PANCRELIPASE AMYLASE\PANCRELIPASE LIPASE\PANCRELIPASE PROTEASE
  2. PANTOPRAZOLE [Concomitant]
     Active Substance: PANTOPRAZOLE
  3. TEMOZOLAMIDE [Suspect]
     Active Substance: TEMOZOLOMIDE
     Indication: PANCREATIC NEUROENDOCRINE TUMOUR
     Dosage: ON 28/FEB/2021, SHE RECEIVED MOST RECENT DOSE. CUMULATIVE DOSAGE OF 6600 MG.
     Route: 048
     Dates: start: 20210224
  4. HAVLANE [Concomitant]
     Active Substance: LOPRAZOLAM
  5. CAPECITABINE. [Suspect]
     Active Substance: CAPECITABINE
     Indication: PANCREATIC NEUROENDOCRINE TUMOUR
     Dosage: ON 28/FEB/2021, SHE RECEIVED MOST RECENT DOSE. CUMULATIVE DOSAGE OF 144200 MG.
     Route: 048
     Dates: start: 20210215

REACTIONS (1)
  - Cholangitis [Recovered/Resolved]

NARRATIVE: CASE EVENT DATE: 20210322
